FAERS Safety Report 19349341 (Version 1)
Quarter: 2021Q2

REPORT INFORMATION
  Report Type: Spontaneous
  Country: US (occurrence: US)
  Receive Date: 20210529
  Receipt Date: 20210529
  Transmission Date: 20210717
  Serious: Yes (Disabling)
  Sender: FDA-Public Use
  Company Number: None

PATIENT
  Age: 52 Year
  Sex: Male
  Weight: 92.25 kg

DRUGS (3)
  1. ACYCLOVIR 400 MG [Concomitant]
     Active Substance: ACYCLOVIR
  2. CENTRUM [Concomitant]
     Active Substance: VITAMINS
  3. METHYLPHENIDATE ER 36MG [Suspect]
     Active Substance: METHYLPHENIDATE
     Indication: ATTENTION DEFICIT HYPERACTIVITY DISORDER
     Dosage: ?          QUANTITY:30 TABLET(S);?
     Route: 048
     Dates: start: 20210513, end: 20210529

REACTIONS (6)
  - Drug ineffective [None]
  - Drug delivery system issue [None]
  - Somnolence [None]
  - Anxiety [None]
  - Insomnia [None]
  - Product substitution issue [None]

NARRATIVE: CASE EVENT DATE: 20210529
